FAERS Safety Report 5343958-9 (Version None)
Quarter: 2007Q2

REPORT INFORMATION
  Report Type: 
  Country: None (occurrence: None)
  Receive Date: 20070604
  Receipt Date: 20070529
  Transmission Date: 20071010
  Serious: Yes (Hospitalization, Other)
  Sender: FDA-Public Use
  Company Number: HQWYE464322MAR06

PATIENT
  Sex: Female
  Weight: 117.59 kg

DRUGS (13)
  1. PREMPRO [Suspect]
     Indication: MENOPAUSE
     Dosage: 0.625/2.5MG ONCE DAILY
     Route: 048
     Dates: start: 19960101, end: 20030101
  2. LIPITOR [Concomitant]
     Indication: BLOOD CHOLESTEROL INCREASED
     Route: 048
     Dates: start: 20021001
  3. INSULIN [Concomitant]
     Indication: DIABETES MELLITUS
     Dosage: VARYING DOSE, GENERALLY INCREASING EACH TIME
     Route: 058
  4. INSULIN [Concomitant]
     Dosage: 70/30 55 UNITS TWICE DAILY
     Route: 058
  5. HYDROCHLOROTHIAZIDE [Concomitant]
     Indication: HYPERTENSION
     Route: 065
  6. ASPIRIN [Concomitant]
     Indication: HYPERTENSION
     Route: 065
  7. VERAPAMIL [Concomitant]
     Indication: BLOOD PRESSURE
     Route: 048
     Dates: start: 19960101
  8. VERAPAMIL [Concomitant]
     Route: 048
  9. COZAAR [Concomitant]
     Indication: DIABETES MELLITUS
     Route: 065
  10. GLUCOPHAGE [Concomitant]
     Indication: DIABETES MELLITUS
     Route: 065
  11. MULTIVITAMINS AND IRON [Concomitant]
     Indication: MEDICAL DIET
     Route: 048
  12. PROZAC [Concomitant]
     Indication: DEPRESSION
     Route: 048
     Dates: start: 20020301
  13. PROZAC [Concomitant]
     Route: 048
     Dates: start: 20040101

REACTIONS (1)
  - BREAST CANCER METASTATIC [None]
